FAERS Safety Report 25814235 (Version 1)
Quarter: 2025Q3

REPORT INFORMATION
  Report Type: Spontaneous
  Country: EU (occurrence: EU)
  Receive Date: 20250917
  Receipt Date: 20250917
  Transmission Date: 20251021
  Serious: Yes (Life-Threatening)
  Sender: PFIZER
  Company Number: None

PATIENT
  Age: 65 Year
  Sex: Female

DRUGS (4)
  1. RITUXIMAB [Suspect]
     Active Substance: RITUXIMAB
     Indication: Urticaria
     Route: 042
     Dates: start: 20241001
  2. ATROVENT [Concomitant]
     Active Substance: IPRATROPIUM BROMIDE
     Indication: Asthma
     Dosage: 40 UG, 1X/DAY (EVERY 6 HOURS, SOLUTION FOR INHALATION IN PRESSURE CONTAINER, 1 INHALER OF 200 DOSES)
     Dates: start: 20240528
  3. LORAZEPAM [Concomitant]
     Active Substance: LORAZEPAM
     Indication: Depression
     Dosage: 1 MG, 1X/DAY, AT NIGHT (EFG TABLETS, 50 TABLETS)
     Route: 048
     Dates: start: 20230309
  4. CLOBETASOL PROPIONATE [Concomitant]
     Active Substance: CLOBETASOL PROPIONATE
     Indication: Arteritis
     Dosage: 1X/DAY(EVERY 24 HOURS, 1 TUBE OF 30 G)
     Route: 061
     Dates: start: 20230901

REACTIONS (2)
  - Angina pectoris [Recovered/Resolved]
  - Off label use [Unknown]

NARRATIVE: CASE EVENT DATE: 20241001
